FAERS Safety Report 7990555-2 (Version None)
Quarter: 2011Q4

REPORT INFORMATION
  Report Type: 
  Country: None (occurrence: None)
  Receive Date: 20111219
  Receipt Date: 20111003
  Transmission Date: 20120403
  Serious: No
  Sender: FDA-Public Use
  Company Number: US-ASTRAZENECA-2011SE59341

PATIENT
  Age: 50 Year
  Sex: Male

DRUGS (2)
  1. ULORIC [Suspect]
     Route: 065
     Dates: start: 20110801
  2. CRESTOR [Suspect]
     Route: 048
     Dates: start: 20070101

REACTIONS (3)
  - MYALGIA [None]
  - INAPPROPRIATE SCHEDULE OF DRUG ADMINISTRATION [None]
  - ARTHRALGIA [None]
